FAERS Safety Report 7608008-X (Version None)
Quarter: 2011Q3

REPORT INFORMATION
  Report Type: 
  Country: None (occurrence: None)
  Receive Date: 20110714
  Receipt Date: 20110706
  Transmission Date: 20111222
  Serious: Yes (Other)
  Sender: FDA-Public Use
  Company Number: US-PFIZER INC-2011153015

PATIENT

DRUGS (3)
  1. VICTOZA [Suspect]
     Dosage: UNK
     Route: 058
  2. LANTUS [Suspect]
     Dosage: 100 IU/ML, INJECTION SOLUTION
     Route: 051
  3. GLIPIZIDE [Suspect]
     Dosage: UNK

REACTIONS (1)
  - HYPOGLYCAEMIA [None]
